FAERS Safety Report 20557992 (Version 2)
Quarter: 2022Q1

REPORT INFORMATION
  Report Type: Spontaneous
  Country: GR (occurrence: GR)
  Receive Date: 20220307
  Receipt Date: 20220315
  Transmission Date: 20220423
  Serious: Yes (Death, Hospitalization, Other)
  Sender: FDA-Public Use
  Company Number: GR-BoehringerIngelheim-2022-BI-157523

PATIENT
  Age: 76 Year
  Sex: Female
  Weight: 75 kg

DRUGS (9)
  1. PRADAXA [Suspect]
     Active Substance: DABIGATRAN ETEXILATE MESYLATE
     Indication: Pulmonary embolism
     Route: 048
     Dates: start: 2018, end: 20220303
  2. ALTEPLASE [Concomitant]
     Active Substance: ALTEPLASE
     Indication: Pulmonary embolism
     Dosage: 10 + 90 MG ONCE
     Route: 042
     Dates: start: 20220304
  3. BENSERAZIDE HYDROCHLORIDE\LEVODOPA [Concomitant]
     Active Substance: BENSERAZIDE HYDROCHLORIDE\LEVODOPA
     Indication: Parkinson^s disease
  4. PAROXETINE HYDROCHLORIDE [Concomitant]
     Active Substance: PAROXETINE HYDROCHLORIDE
     Indication: Depression
  5. TROFOCARD [Concomitant]
     Indication: Product used for unknown indication
  6. CALCIUM CARBONATE\CHOLECALCIFEROL [Concomitant]
     Active Substance: CALCIUM CARBONATE\CHOLECALCIFEROL
     Indication: Osteoporosis
  7. ZURCASOL [Concomitant]
     Indication: Product used for unknown indication
  8. TRANXENE [Concomitant]
     Active Substance: CLORAZEPATE DIPOTASSIUM
     Indication: Anxiety
  9. DOMPERIDONE [Concomitant]
     Active Substance: DOMPERIDONE
     Indication: Product used for unknown indication

REACTIONS (3)
  - Pulmonary embolism [Fatal]
  - Drug ineffective [Unknown]
  - Acidosis [Unknown]

NARRATIVE: CASE EVENT DATE: 20220304
